FAERS Safety Report 8154977-1 (Version None)
Quarter: 2012Q1

REPORT INFORMATION
  Report Type: 
  Country: None (occurrence: None)
  Receive Date: 20120221
  Receipt Date: 20120207
  Transmission Date: 20120608
  Serious: Yes (Death)
  Sender: FDA-Public Use
  Company Number: JP-GE HEALTHCARE MEDICAL DIAGNOSTICS-MSTR-NO-1202S-0013

PATIENT
  Age: 76 Year
  Sex: Male

DRUGS (3)
  1. METASTRON [Suspect]
     Indication: METASTATIC PAIN
     Route: 042
     Dates: start: 20110318, end: 20110318
  2. METASTRON [Suspect]
     Indication: THERAPEUTIC PROCEDURE
  3. FAMOTIDINE [Concomitant]

REACTIONS (2)
  - ANAEMIA [None]
  - INTERSTITIAL LUNG DISEASE [None]
